FAERS Safety Report 8525694-0 (Version None)
Quarter: 2012Q3

REPORT INFORMATION
  Report Type: 
  Country: None (occurrence: None)
  Receive Date: 20120710
  Receipt Date: 20120625
  Transmission Date: 20120928
  Serious: Yes (Death)
  Sender: FDA-Public Use
  Company Number: DSJ-2012-11372

PATIENT
  Age: 83 Year
  Sex: Female
  Weight: 53 kg

DRUGS (3)
  1. NIFEDIPINE [Concomitant]
  2. OLMESARTAN MEDOXOMIL [Suspect]
     Indication: ESSENTIAL HYPERTENSION
     Dosage: 20 MG,PER ORAL
     Route: 048
     Dates: start: 20100505
  3. LIPITOR (ATORVASTATI CALCIUM)(ATORVASTATIN CALCIUM) [Concomitant]

REACTIONS (1)
  - SUDDEN DEATH [None]
